FAERS Safety Report 12208880 (Version 1)
Quarter: 2016Q1

REPORT INFORMATION
  Report Type: Spontaneous
  Country: US (occurrence: US)
  Receive Date: 20160324
  Receipt Date: 20160324
  Transmission Date: 20160526
  Serious: No
  Sender: FDA-Public Use
  Company Number: US-MDT-ADR-2016-00377

PATIENT
  Age: 74 Year
  Sex: Female

DRUGS (3)
  1. BUPIVACAINE [Suspect]
     Active Substance: BUPIVACAINE
     Dosage: 11.548 MG/DAY
     Route: 037
  2. DILAUDID [Suspect]
     Active Substance: HYDROMORPHONE HYDROCHLORIDE
     Dosage: 384.9 MCG/DAY
     Route: 037
  3. BACLOFFEN [Suspect]
     Active Substance: BACLOFEN
     Dosage: 115.48 MCG/DAY
     Route: 037

REACTIONS (1)
  - Hypoaesthesia [Recovered/Resolved]
